FAERS Safety Report 5120179-6 (Version None)
Quarter: 2006Q4

REPORT INFORMATION
  Report Type: 
  Country: None (occurrence: None)
  Receive Date: 20061002
  Receipt Date: 20061002
  Transmission Date: 20070319
  Serious: Yes (Death)
  Sender: FDA-Public Use
  Company Number: None

PATIENT
  Age: 58 Year
  Weight: 76.6579 kg

DRUGS (2)
  1. DILANTIN [Suspect]
     Indication: PARTIAL SEIZURES WITH SECONDARY GENERALISATION
     Dosage: 230 MG BID OTHER
     Route: 050
     Dates: start: 20060510, end: 20060528
  2. DILANTIN [Suspect]
     Dosage: 100MG AND 150 MG; 100 AM, 150 PM PO
     Route: 048
     Dates: start: 20060528, end: 20060602

REACTIONS (6)
  - BRAIN STEM INFARCTION [None]
  - CEREBRAL INFARCTION [None]
  - CEREBROVASCULAR ACCIDENT [None]
  - CONVULSION [None]
  - DRUG TOXICITY [None]
  - LETHARGY [None]
